FAERS Safety Report 7117787-X (Version None)
Quarter: 2010Q4

REPORT INFORMATION
  Report Type: 
  Country: None (occurrence: None)
  Receive Date: 20101123
  Receipt Date: 20101116
  Transmission Date: 20110411
  Serious: No
  Sender: FDA-Public Use
  Company Number: US-BIOGENIDEC-2010BI040422

PATIENT
  Age: 51 Year
  Sex: Female

DRUGS (1)
  1. AVONEX [Suspect]
     Indication: MULTIPLE SCLEROSIS
     Route: 030
     Dates: start: 20091122, end: 20100301

REACTIONS (4)
  - ALOPECIA [None]
  - GINGIVAL ULCERATION [None]
  - HEADACHE [None]
  - MULTIPLE SCLEROSIS RELAPSE [None]
